FAERS Safety Report 15620389 (Version 1)
Quarter: 2018Q4

REPORT INFORMATION
  Report Type: Report from Study
  Country: US (occurrence: US)
  Receive Date: 20181115
  Receipt Date: 20181115
  Transmission Date: 20190205
  Serious: Yes (Other)
  Sender: FDA-Public Use
  Company Number: US-CONCORDIA PHARMACEUTICALS INC.-GSH201811-003926

PATIENT
  Age: 70 Year
  Sex: Male

DRUGS (1)
  1. DIGOXIN. [Suspect]
     Active Substance: DIGOXIN
     Indication: RIGHT VENTRICULAR FAILURE

REACTIONS (3)
  - Nodal arrhythmia [Not Recovered/Not Resolved]
  - Toxicity to various agents [Unknown]
  - Atrial fibrillation [Unknown]
